FAERS Safety Report 19542835 (Version 1)
Quarter: 2021Q3

REPORT INFORMATION
  Report Type: Spontaneous
  Country: BR (occurrence: BR)
  Receive Date: 20210713
  Receipt Date: 20210713
  Transmission Date: 20211014
  Serious: Yes (Other)
  Sender: FDA-Public Use
  Company Number: BR-TORRENT-00005627

PATIENT
  Sex: Female

DRUGS (1)
  1. VENLIFT OD [Suspect]
     Active Substance: VENLAFAXINE HYDROCHLORIDE
     Indication: PRODUCT USED FOR UNKNOWN INDICATION
     Dosage: IN THE MORNING
     Route: 048
     Dates: start: 20210617

REACTIONS (12)
  - Apathy [Unknown]
  - Visual impairment [Unknown]
  - Chills [Unknown]
  - Fatigue [Unknown]
  - Confusional state [Unknown]
  - Myocardial infarction [Unknown]
  - Malaise [Unknown]
  - Chest pain [Unknown]
  - Yawning [Unknown]
  - Hypoaesthesia oral [Unknown]
  - Dizziness [Unknown]
  - Therapy cessation [Unknown]

NARRATIVE: CASE EVENT DATE: 202106
